FAERS Safety Report 5934586-2 (Version None)
Quarter: 2008Q4

REPORT INFORMATION
  Report Type: 
  Country: None (occurrence: None)
  Receive Date: 20081029
  Receipt Date: 20081024
  Transmission Date: 20090506
  Serious: Yes (Other)
  Sender: FDA-Public Use
  Company Number: GB-JNJCH-2008024607

PATIENT
  Sex: Male
  Weight: 29.5 kg

DRUGS (1)
  1. NON-DROWSY SUDAFED CHILDREN'S SYRUP [Suspect]
     Indication: NASOPHARYNGITIS
     Dosage: TEXT:5 ML (FREQUENCY UNSPECIFIED)
     Route: 048
     Dates: start: 20080919, end: 20080921

REACTIONS (1)
  - BLOOD URINE PRESENT [None]
